FAERS Safety Report 9854750 (Version 3)
Quarter: 2014Q2

REPORT INFORMATION
  Report Type: Spontaneous
  Country: US (occurrence: US)
  Receive Date: 20140130
  Receipt Date: 20140521
  Transmission Date: 20141212
  Serious: Yes (Hospitalization, Other)
  Sender: FDA-Public Use
  Company Number: US-PFIZER INC-2014024202

PATIENT
  Age: 71 Year
  Sex: Male

DRUGS (2)
  1. XALKORI [Suspect]
     Indication: NON-SMALL CELL LUNG CANCER
     Dosage: 250 MG, 2X/DAY
     Route: 048
     Dates: start: 20131204
  2. XALKORI [Suspect]
     Dosage: 250 MG, UNK
     Dates: start: 20131223

REACTIONS (9)
  - Fall [Unknown]
  - Ankle fracture [Unknown]
  - Haemoglobin decreased [Unknown]
  - Pneumonia aspiration [Unknown]
  - Pyrexia [Unknown]
  - Abdominal discomfort [Not Recovered/Not Resolved]
  - Dyspepsia [Unknown]
  - Decreased appetite [Unknown]
  - Abdominal distension [Unknown]
